FAERS Safety Report 10152237 (Version 1)
Quarter: 2014Q2

REPORT INFORMATION
  Report Type: Spontaneous
  Country: US (occurrence: None)
  Receive Date: 20140502
  Receipt Date: 20140502
  Transmission Date: 20141212
  Serious: Yes (Disabling, Other)
  Sender: FDA-Public Use
  Company Number: None

PATIENT
  Age: 44 Year
  Sex: Female
  Weight: 78.47 kg

DRUGS (12)
  1. ALBUTEROL SULFATE [Suspect]
     Indication: UPPER RESPIRATORY TRACT INFECTION
     Route: 055
     Dates: start: 20140426, end: 20140426
  2. ALBUTEROL SULFATE [Suspect]
     Indication: ASTHMA
     Route: 055
     Dates: start: 20140426, end: 20140426
  3. AMPHETAMINE SALTS (GENERIC ADDERALL) [Concomitant]
  4. OXYCODONE [Concomitant]
  5. VITAMIN C [Concomitant]
  6. B6 [Concomitant]
  7. B12 [Concomitant]
  8. TYLENOL [Concomitant]
  9. IBUPROFEN [Concomitant]
  10. SUMATRIPTAN [Concomitant]
  11. ACYCLOVIR [Concomitant]
  12. BENADRYL [Concomitant]

REACTIONS (4)
  - Arthralgia [None]
  - Spinal pain [None]
  - Bone pain [None]
  - Weight bearing difficulty [None]
